FAERS Safety Report 15583545 (Version 1)
Quarter: 2018Q4

REPORT INFORMATION
  Report Type: Spontaneous
  Country: US (occurrence: US)
  Receive Date: 20181031
  Receipt Date: 20181031
  Transmission Date: 20190205
  Serious: No
  Sender: FDA-Public Use
  Company Number: None

PATIENT

DRUGS (4)
  1. DEPAKOTE [Suspect]
     Active Substance: DIVALPROEX SODIUM
  2. BUPROPION. [Suspect]
     Active Substance: BUPROPION
  3. BUSPIRONE [Suspect]
     Active Substance: BUSPIRONE HYDROCHLORIDE
  4. BUSPIRONE [Suspect]
     Active Substance: BUSPIRONE HYDROCHLORIDE

REACTIONS (7)
  - Back pain [None]
  - Abdominal pain upper [None]
  - Hypoacusis [None]
  - Off label use [None]
  - Drug monitoring procedure not performed [None]
  - Product prescribing error [None]
  - Dizziness [None]
